FAERS Safety Report 4379910-X (Version None)
Quarter: 2004Q2

REPORT INFORMATION
  Report Type: 
  Country: None (occurrence: None)
  Receive Date: 20040614
  Receipt Date: 20040608
  Transmission Date: 20050107
  Serious: No
  Sender: FDA-Public Use
  Company Number: 2004UW10470

PATIENT
  Age: 19 Year
  Sex: Female

DRUGS (12)
  1. SEROQUEL [Suspect]
     Indication: POST-TRAUMATIC STRESS DISORDER
     Dosage: 50 MG DAILY PO
     Route: 048
     Dates: end: 20030604
  2. SEROQUEL [Suspect]
     Indication: POST-TRAUMATIC STRESS DISORDER
     Dosage: 75 MG DAILY PO
     Route: 048
     Dates: start: 20030604, end: 20030607
  3. SEROQUEL [Suspect]
     Indication: POST-TRAUMATIC STRESS DISORDER
     Dosage: 150 MG DAILY PO
     Route: 048
     Dates: start: 20030607, end: 20030613
  4. SEROQUEL [Suspect]
     Indication: POST-TRAUMATIC STRESS DISORDER
     Dosage: 250 MG DAILY PO
     Route: 048
     Dates: start: 20030613, end: 20030628
  5. SEROQUEL [Suspect]
     Indication: POST-TRAUMATIC STRESS DISORDER
     Dosage: 75 MG DAILY PO
     Route: 048
     Dates: start: 20030628, end: 20031103
  6. SEROQUEL [Suspect]
     Indication: POST-TRAUMATIC STRESS DISORDER
     Dates: start: 20031103
  7. LUVOX [Suspect]
     Dosage: 75 MG DAILY
     Dates: start: 20030603, end: 20030614
  8. LUVOX [Suspect]
     Dosage: 150 MG DAILY
     Dates: start: 20040614
  9. MYSLEE [Suspect]
     Indication: INSOMNIA
     Dosage: 10 MG DAILY
     Dates: start: 20030531, end: 20031103
  10. MYSLEE [Suspect]
     Indication: INSOMNIA
     Dosage: 40 MG ONCE
     Dates: start: 20031103
  11. ZYPREXA [Concomitant]
  12. ROHYPNOL [Concomitant]

REACTIONS (7)
  - ALANINE AMINOTRANSFERASE INCREASED [None]
  - ASPARTATE AMINOTRANSFERASE INCREASED [None]
  - ATAXIA [None]
  - GAMMA-GLUTAMYLTRANSFERASE INCREASED [None]
  - HEPATIC FUNCTION ABNORMAL [None]
  - INTENTIONAL OVERDOSE [None]
  - MIGRAINE WITHOUT AURA [None]
